FAERS Safety Report 5112887-8 (Version None)
Quarter: 2006Q3

REPORT INFORMATION
  Report Type: 
  Country: None (occurrence: None)
  Receive Date: 20060922
  Receipt Date: 20060320
  Transmission Date: 20061208
  Serious: Yes (Hospitalization)
  Sender: FDA-Public Use
  Company Number: DE-PURDUE-DEU_2006_0002085

PATIENT
  Age: 73 Year
  Sex: Female
  Weight: 87 kg

DRUGS (13)
  1. OXYCODONE HCL/NALOXONE HCL CR TAB20/10MG [Suspect]
     Indication: BACK PAIN
     Dosage: 20 MG, BID
     Route: 048
     Dates: start: 20051110, end: 20060110
  2. OXYCODONE HCL/NALOXONE HCL CR TAB20/10MG [Suspect]
     Dosage: 40 MG, BID
     Dates: start: 20060111, end: 20060222
  3. ENEAS [Concomitant]
  4. METOPROLOL SUCCINATE [Concomitant]
  5. METFORMIN [Concomitant]
  6. ALLOPURINOL [Concomitant]
  7. L-THYROXIN ^HENNING^ [Concomitant]
  8. BEZAFIBRATE [Concomitant]
  9. ASPIRIN [Concomitant]
  10. PROTON PUMP INHIBITOR [Concomitant]
  11. DIURETICS [Concomitant]
  12. COSOPT [Concomitant]
  13. LUMIGAN [Concomitant]

REACTIONS (2)
  - CEREBRAL ARTERY EMBOLISM [None]
  - CEREBRAL INFARCTION [None]
